FAERS Safety Report 5312228-7 (Version None)
Quarter: 2007Q2

REPORT INFORMATION
  Report Type: 
  Country: None (occurrence: None)
  Receive Date: 20070430
  Receipt Date: 20061003
  Transmission Date: 20071010
  Serious: No
  Sender: FDA-Public Use
  Company Number: 2006UW19163

PATIENT
  Age: 59 Year
  Sex: Female
  Weight: 72.6 kg

DRUGS (3)
  1. NEXIUM [Suspect]
     Indication: GASTROOESOPHAGEAL REFLUX DISEASE
     Route: 048
     Dates: start: 20061001
  2. ATIVAN [Concomitant]
  3. ANTIVIRAL FOR GENITAL HERPES [Concomitant]

REACTIONS (3)
  - DRY MOUTH [None]
  - ERUCTATION [None]
  - SENSATION OF FOREIGN BODY [None]
